FAERS Safety Report 7448303-0 (Version None)
Quarter: 2011Q2

REPORT INFORMATION
  Report Type: 
  Country: None (occurrence: None)
  Receive Date: 20110429
  Receipt Date: 20110420
  Transmission Date: 20111010
  Serious: Yes (Hospitalization)
  Sender: FDA-Public Use
  Company Number: CA-ASTRAZENECA-2011SE22549

PATIENT
  Age: 53 Year
  Sex: Male

DRUGS (4)
  1. NEXIUM [Concomitant]
     Route: 048
  2. AMITRIPTLINE HYDROCHLORIDE TAB [Concomitant]
     Route: 048
  3. LYRICA [Concomitant]
     Route: 048
  4. CRESTOR [Suspect]
     Route: 048
     Dates: start: 20080101

REACTIONS (7)
  - CONDUCTION DISORDER [None]
  - TACHYCARDIA [None]
  - DIZZINESS [None]
  - IMPAIRED WORK ABILITY [None]
  - INSOMNIA [None]
  - DYSPNOEA [None]
  - CHEST PAIN [None]
